FAERS Safety Report 23919535 (Version 1)
Quarter: 2024Q2

REPORT INFORMATION
  Report Type: Spontaneous
  Country: US (occurrence: None)
  Receive Date: 20240529
  Receipt Date: 20240529
  Transmission Date: 20240716
  Serious: Yes (Hospitalization, Disabling, Other)
  Sender: FDA-Public Use
  Company Number: None

PATIENT
  Age: 45 Year
  Sex: Female
  Weight: 58.5 kg

DRUGS (4)
  1. CIPRO [Suspect]
     Active Substance: CIPROFLOXACIN\CIPROFLOXACIN HYDROCHLORIDE
     Indication: Sinusitis
     Dosage: 2 TABLETS TWICE A DAY ORAL
     Route: 048
     Dates: start: 20120901, end: 20130131
  2. LEVAQUIN [Suspect]
     Active Substance: LEVOFLOXACIN
  3. CLONAZEPAM [Concomitant]
     Active Substance: CLONAZEPAM
  4. suboxin [Concomitant]

REACTIONS (6)
  - Arthralgia [None]
  - Bursitis [None]
  - Rotator cuff syndrome [None]
  - Cardiac disorder [None]
  - Heart rate increased [None]
  - Heart rate irregular [None]

NARRATIVE: CASE EVENT DATE: 20130115
